FAERS Safety Report 6526234-8 (Version None)
Quarter: 2009Q4

REPORT INFORMATION
  Report Type: 
  Country: None (occurrence: None)
  Receive Date: 20091228
  Receipt Date: 20091208
  Transmission Date: 20100525
  Serious: Yes (Hospitalization)
  Sender: FDA-Public Use
  Company Number: 20090592

PATIENT
  Age: 47 Year
  Sex: Female

DRUGS (2)
  1. LIDOCAINE HCL INJECTION, USP (0626-25) 20 MG/ML [Suspect]
     Indication: EPIDURAL ANAESTHESIA
     Dosage: 5 ML 2% EPIDURAL
     Route: 008
  2. LIDOCAINE 1.5% [Concomitant]

REACTIONS (1)
  - PARAPLEGIA [None]
